FAERS Safety Report 4818316-3 (Version None)
Quarter: 2005Q4

REPORT INFORMATION
  Report Type: 
  Country: None (occurrence: None)
  Receive Date: 20051102
  Receipt Date: 20030228
  Transmission Date: 20060501
  Serious: Yes (Death, Hospitalization)
  Sender: FDA-Public Use
  Company Number: PHBS2003JP02414

PATIENT
  Age: 64 Year
  Sex: Female

DRUGS (6)
  1. GLEEVEC [Suspect]
     Indication: CHRONIC MYELOID LEUKAEMIA
     Dosage: 400 MG/DAY
     Route: 048
     Dates: start: 20021101, end: 20030220
  2. GLEEVEC [Suspect]
     Dosage: 400 MG/D
     Route: 048
     Dates: start: 20020214, end: 20021001
  3. ZITHROMAC [Concomitant]
  4. DASEN [Concomitant]
  5. MUCOSOLVAN [Concomitant]
  6. GASTER [Concomitant]

REACTIONS (26)
  - ANAEMIA [None]
  - ANTITHROMBIN III DECREASED [None]
  - BLOOD CREATININE INCREASED [None]
  - BLOOD UREA INCREASED [None]
  - BONE MARROW NECROSIS [None]
  - DISSEMINATED INTRAVASCULAR COAGULATION [None]
  - FACE OEDEMA [None]
  - FATIGUE [None]
  - FIBRIN D DIMER INCREASED [None]
  - FIBRIN DEGRADATION PRODUCTS INCREASED [None]
  - HAEMATURIA [None]
  - MALAISE [None]
  - MARROW HYPERPLASIA [None]
  - MULTI-ORGAN FAILURE [None]
  - OEDEMA PERIPHERAL [None]
  - PLASMINOGEN DECREASED [None]
  - PLATELET COUNT DECREASED [None]
  - PNEUMONIA [None]
  - PROTHROMBIN TIME PROLONGED [None]
  - PYREXIA [None]
  - RALES [None]
  - RASH [None]
  - RENAL FAILURE ACUTE [None]
  - RESPIRATORY FAILURE [None]
  - SHOCK [None]
  - SPLENOMEGALY [None]
